FAERS Safety Report 14570183 (Version 1)
Quarter: 2018Q1

REPORT INFORMATION
  Report Type: Report from Study
  Country: None (occurrence: GB)
  Receive Date: 20180225
  Receipt Date: 20180225
  Transmission Date: 20180509
  Serious: Yes (Hospitalization)
  Sender: FDA-Public Use
  Company Number: GB-ABBVIE-18K-167-2266727-00

PATIENT
  Age: 49 Year
  Sex: Male

DRUGS (1)
  1. DUODOPA [Suspect]
     Active Substance: CARBIDOPA\LEVODOPA
     Indication: PARKINSON^S DISEASE
     Dosage: 100ML CASSETTE, 1.5 CASSETTE IN ONE DAY
     Route: 050

REACTIONS (2)
  - Device issue [Unknown]
  - Dystonia [Unknown]

NARRATIVE: CASE EVENT DATE: 20180219
